FAERS Safety Report 9719264 (Version 2)
Quarter: 2013Q4

REPORT INFORMATION
  Report Type: Spontaneous
  Country: DE (occurrence: DE)
  Receive Date: 20131127
  Receipt Date: 20131127
  Transmission Date: 20140711
  Serious: Yes (Other)
  Sender: FDA-Public Use
  Company Number: PHHY2013DE132219

PATIENT
  Age: 11 Year
  Sex: Female

DRUGS (3)
  1. RITALIN [Suspect]
     Indication: ATTENTION DEFICIT/HYPERACTIVITY DISORDER
     Dosage: 25 MG (20 MG IN THE MORNING, 5 MG IN THE AFTERNOON), DAILY
     Dates: start: 201205, end: 2013
  2. RITALIN [Suspect]
     Dosage: 25 MG (20 MG IN THE MORNING, 5 MG IN THE AFTERNOON), DAILY
     Dates: start: 2013
  3. RITALIN [Suspect]
     Dosage: UNK UKN, UNK

REACTIONS (2)
  - Von Willebrand^s disease [Not Recovered/Not Resolved]
  - Epistaxis [Not Recovered/Not Resolved]
